FAERS Safety Report 9875767 (Version 1)
Quarter: 2014Q1

REPORT INFORMATION
  Report Type: Spontaneous
  Country: CH (occurrence: None)
  Receive Date: 20140204
  Receipt Date: 20140204
  Transmission Date: 20141002
  Serious: No
  Sender: FDA-Public Use
  Company Number: 20140030

PATIENT
  Age: 24 Year
  Sex: Male

DRUGS (2)
  1. FERINJECT [Suspect]
     Indication: IRON DEFICIENCY
     Route: 042
     Dates: start: 201109, end: 201112
  2. UNSPECIFIED ANTIBIOTICS [Concomitant]

REACTIONS (2)
  - Cystic fibrosis [None]
  - Condition aggravated [None]
